FAERS Safety Report 12314876 (Version 2)
Quarter: 2016Q2

REPORT INFORMATION
  Report Type: Spontaneous
  Country: DE (occurrence: DE)
  Receive Date: 20160428
  Receipt Date: 20160520
  Transmission Date: 20160815
  Serious: Yes (Other)
  Sender: FDA-Public Use
  Company Number: DE-PFIZER INC-2016231005

PATIENT
  Age: 28 Year
  Sex: Female
  Weight: 65 kg

DRUGS (2)
  1. TREVILOR RETARD [Suspect]
     Active Substance: VENLAFAXINE HYDROCHLORIDE
     Indication: DEPRESSION
     Dosage: 37.5 MG, UNK
  2. TREVILOR RETARD [Suspect]
     Active Substance: VENLAFAXINE HYDROCHLORIDE
     Dosage: 75 MG, UNK

REACTIONS (2)
  - Vomiting [Unknown]
  - Circulatory collapse [Unknown]

NARRATIVE: CASE EVENT DATE: 2010
